FAERS Safety Report 8079542-6 (Version None)
Quarter: 2012Q1

REPORT INFORMATION
  Report Type: 
  Country: None (occurrence: None)
  Receive Date: 20120128
  Receipt Date: 20110829
  Transmission Date: 20120608
  Serious: No
  Sender: FDA-Public Use
  Company Number: US-ABBOTT-11P-163-0850180-00

PATIENT
  Age: 49 Year
  Sex: Female

DRUGS (10)
  1. FOLIC ACID [Concomitant]
     Indication: PSORIASIS
  2. FOLIC ACID [Concomitant]
     Indication: VITAMIN SUPPLEMENTATION
     Route: 048
     Dates: start: 20090101
  3. LAMICTAL [Concomitant]
     Indication: AFFECTIVE DISORDER
     Dates: start: 20110601
  4. LAMICTAL [Concomitant]
     Indication: PANIC ATTACK
  5. HUMIRA [Suspect]
     Indication: PSORIASIS
     Dates: start: 20100901
  6. EFFEXOR [Concomitant]
     Indication: DEPRESSION
     Dosage: XL-DAILY
  7. HUMIRA [Suspect]
     Dates: end: 20110701
  8. METHOTREXATE [Concomitant]
     Indication: PSORIASIS
     Dosage: TAKES 7 EVERY WEEK
     Route: 048
     Dates: start: 20090101
  9. HUMIRA [Suspect]
  10. LAMICTAL [Concomitant]
     Indication: ANXIETY

REACTIONS (1)
  - PSORIASIS [None]
